FAERS Safety Report 25655840 (Version 1)
Quarter: 2025Q3

REPORT INFORMATION
  Report Type: Spontaneous
  Country: US (occurrence: US)
  Receive Date: 20250807
  Receipt Date: 20250807
  Transmission Date: 20251020
  Serious: No
  Sender: SUNOVION
  Company Number: US-MYOVANT SCIENCES GMBH-2024MYSCI0500994

PATIENT
  Age: 64 Year
  Sex: Male

DRUGS (9)
  1. ORGOVYX [Suspect]
     Active Substance: RELUGOLIX
     Indication: Prostate cancer
     Dosage: 360 MILLIGRAM, ONE TIME DOSE
     Route: 048
  2. ORGOVYX [Suspect]
     Active Substance: RELUGOLIX
     Dosage: 120 MILLIGRAM, QD
     Route: 048
  3. METFORMIN [Concomitant]
     Active Substance: METFORMIN HYDROCHLORIDE
     Indication: Product used for unknown indication
  4. SEMAGLUTIDE [Concomitant]
     Active Substance: SEMAGLUTIDE
     Indication: Product used for unknown indication
  5. PREDNISONE [Concomitant]
     Active Substance: PREDNISONE
     Indication: Product used for unknown indication
  6. ZYTIGA [Concomitant]
     Active Substance: ABIRATERONE ACETATE
     Indication: Product used for unknown indication
  7. LEXAPRO [Concomitant]
     Active Substance: ESCITALOPRAM OXALATE
  8. MECLIZINE HYDROCHLORIDE [Concomitant]
     Active Substance: MECLIZINE HYDROCHLORIDE
  9. MOUNJARO [Concomitant]
     Active Substance: TIRZEPATIDE

REACTIONS (3)
  - Toxicity to various agents [Unknown]
  - Vertigo [Recovered/Resolved]
  - Hot flush [Unknown]
